FAERS Safety Report 5906748-1 (Version None)
Quarter: 2008Q4

REPORT INFORMATION
  Report Type: 
  Country: None (occurrence: None)
  Receive Date: 20081002
  Receipt Date: 20080919
  Transmission Date: 20090506
  Serious: Yes (Death, Hospitalization)
  Sender: FDA-Public Use
  Company Number: JP-PFIZER INC-2008079257

PATIENT
  Age: 48 Year
  Sex: Male

DRUGS (2)
  1. METHYLPREDNISOLONE SODIUM SUCCINATE [Suspect]
     Indication: GLOMERULONEPHRITIS
     Dosage: DAILY DOSE:.5GRAM
     Route: 042
  2. PREDNISOLONE [Concomitant]

REACTIONS (2)
  - ANEURYSM RUPTURED [None]
  - INFECTIVE ANEURYSM [None]
